FAERS Safety Report 17898974 (Version 1)
Quarter: 2020Q2

REPORT INFORMATION
  Report Type: Spontaneous
  Country: JP (occurrence: JP)
  Receive Date: 20200616
  Receipt Date: 20200616
  Transmission Date: 20200714
  Serious: Yes (Hospitalization, Other)
  Sender: FDA-Public Use
  Company Number: JP-TEVA-2020-JP-1510230

PATIENT
  Age: 77 Year
  Sex: Male

DRUGS (5)
  1. NIVOLUMAB [Suspect]
     Active Substance: NIVOLUMAB
     Indication: MALIGNANT MELANOMA
     Dosage: FIRST-LINE THERAPY
     Route: 050
  2. METHYLPREDNISOLONE. [Suspect]
     Active Substance: METHYLPREDNISOLONE
     Indication: COLITIS ULCERATIVE
     Dosage: 45 MILLIGRAM DAILY;
     Route: 042
  3. PREDNISOLONE. [Suspect]
     Active Substance: PREDNISOLONE
     Indication: POLYMYALGIA RHEUMATICA
     Dosage: 15 MILLIGRAM DAILY; MAINTENANCE DOSE
     Route: 065
  4. IPILIMUMAB [Suspect]
     Active Substance: IPILIMUMAB
     Indication: MALIGNANT MELANOMA
     Dosage: SECOND-LINE THERAPY
     Route: 050
  5. METHYLPREDNISOLONE. [Suspect]
     Active Substance: METHYLPREDNISOLONE
     Dosage: 35 MILLIGRAM DAILY;
     Route: 042

REACTIONS (6)
  - Cytomegalovirus enterocolitis [Recovering/Resolving]
  - Polymyalgia rheumatica [Unknown]
  - Cytomegalovirus infection reactivation [Recovering/Resolving]
  - Colitis ulcerative [Recovering/Resolving]
  - Small intestinal haemorrhage [Recovering/Resolving]
  - Anaemia [Recovering/Resolving]
